FAERS Safety Report 20187412 (Version 1)
Quarter: 2021Q4

REPORT INFORMATION
  Report Type: Spontaneous
  Country: US (occurrence: None)
  Receive Date: 20211214
  Receipt Date: 20211214
  Transmission Date: 20220303
  Serious: Yes (Other)
  Sender: FDA-Public Use
  Company Number: None

PATIENT
  Age: 50 Year
  Sex: Female
  Weight: 74.25 kg

DRUGS (35)
  1. APREPITANT [Suspect]
     Active Substance: APREPITANT
     Indication: Nausea
  2. DILTIAZEM [Suspect]
     Active Substance: DILTIAZEM
  3. Acetaminophen/ Codeine #4 [Concomitant]
  4. AIMOVIG [Concomitant]
     Active Substance: ERENUMAB-AOOE
  5. BENZONATATE [Concomitant]
     Active Substance: BENZONATATE
  6. BREO ELLIPTA [Concomitant]
     Active Substance: FLUTICASONE FUROATE\VILANTEROL TRIFENATATE
  7. CLONAZEPAM [Concomitant]
     Active Substance: CLONAZEPAM
  8. CLOTRIMAZOLE AND BETAMETHASONE DIPROPIONATE [Concomitant]
     Active Substance: BETAMETHASONE\BETAMETHASONE DIPROPIONATE\CLOTRIMAZOLE
  9. DALIRESP [Concomitant]
     Active Substance: ROFLUMILAST
  10. DILTIAZEM [Concomitant]
     Active Substance: DILTIAZEM
  11. Fludrocortizone [Concomitant]
  12. GABAPENTIN [Concomitant]
     Active Substance: GABAPENTIN
  13. LAMOTRIGINE [Concomitant]
     Active Substance: LAMOTRIGINE
  14. LEVALBUTEROL [Concomitant]
     Active Substance: LEVALBUTEROL
  15. Levalbuterol HFA [Concomitant]
  16. MIDODRINE [Concomitant]
     Active Substance: MIDODRINE
  17. MONTELUKAST [Concomitant]
     Active Substance: MONTELUKAST SODIUM
  18. MOTEGRITY [Concomitant]
     Active Substance: PRUCALOPRIDE SUCCINATE
  19. ONDANSETRON [Concomitant]
     Active Substance: ONDANSETRON
  20. PANTOPRAZOLE [Concomitant]
     Active Substance: PANTOPRAZOLE
  21. PRAVASTATIN [Concomitant]
     Active Substance: PRAVASTATIN
  22. PREGABALIN [Concomitant]
     Active Substance: PREGABALIN
  23. Zolmitriptan Nasal [Concomitant]
  24. Zolmatriptan [Concomitant]
  25. Centrum Multivitamin [Concomitant]
  26. VITAMIN C [Concomitant]
     Active Substance: ASCORBIC ACID
  27. FISH OIL\OMEGA-3 FATTY ACIDS [Concomitant]
     Active Substance: FISH OIL\OMEGA-3 FATTY ACIDS
  28. COENZYME Q10 [Concomitant]
     Active Substance: DIETARY SUPPLEMENT\UBIDECARENONE
  29. DIPHENHYDRAMINE [Concomitant]
     Active Substance: DIPHENHYDRAMINE
  30. ACETAMINOPHEN\CAFFEINE [Concomitant]
     Active Substance: ACETAMINOPHEN\CAFFEINE
  31. GUAIFENESIN [Concomitant]
     Active Substance: GUAIFENESIN
  32. VOLTAREN [Concomitant]
     Active Substance: DICLOFENAC SODIUM
  33. GAVISCON [Concomitant]
     Active Substance: ALUMINUM HYDROXIDE\MAGNESIUM CARBONATE
  34. MIRALAX [Concomitant]
     Active Substance: POLYETHYLENE GLYCOL 3350
  35. DOCUSATE [Concomitant]
     Active Substance: DOCUSATE

REACTIONS (2)
  - Drug interaction [None]
  - Brief resolved unexplained event [None]
